FAERS Safety Report 7124240-6 (Version None)
Quarter: 2010Q4

REPORT INFORMATION
  Report Type: 
  Country: None (occurrence: None)
  Receive Date: 20101126
  Receipt Date: 20101112
  Transmission Date: 20110411
  Serious: Yes (Hospitalization)
  Sender: FDA-Public Use
  Company Number: GXKR2010AT12885

PATIENT
  Sex: Male
  Weight: 83 kg

DRUGS (3)
  1. EBETREXAT (NGX) [Suspect]
     Indication: RHEUMATOID ARTHRITIS
     Dosage: 20 MG/DAY
     Route: 048
     Dates: start: 20030101
  2. ETANERCEPT [Suspect]
     Indication: RHEUMATOID ARTHRITIS
     Dosage: 50 MG, QW
     Route: 058
     Dates: start: 20080901, end: 20101001
  3. ALLOPURINOL [Concomitant]
     Indication: GOUTY ARTHRITIS
     Dosage: 100 MG, UNK
     Route: 048

REACTIONS (2)
  - ATRIAL FIBRILLATION [None]
  - CARDIAC FAILURE [None]
